FAERS Safety Report 7916889-5 (Version None)
Quarter: 2011Q4

REPORT INFORMATION
  Report Type: 
  Country: None (occurrence: None)
  Receive Date: 20111116
  Receipt Date: 20111108
  Transmission Date: 20120403
  Serious: Yes (Other)
  Sender: FDA-Public Use
  Company Number: US-JNJFOC-20111103549

PATIENT
  Sex: Female

DRUGS (2)
  1. LAMICTAL [Suspect]
     Indication: CONVULSION PROPHYLAXIS
     Route: 065
  2. TOPAMAX [Suspect]
     Indication: CONVULSION PROPHYLAXIS
     Route: 048

REACTIONS (3)
  - ANKLE FRACTURE [None]
  - ROAD TRAFFIC ACCIDENT [None]
  - CONVULSION [None]
